FAERS Safety Report 4953937-9 (Version None)
Quarter: 2006Q1

REPORT INFORMATION
  Report Type: 
  Country: None (occurrence: None)
  Receive Date: 20060327
  Receipt Date: 20060314
  Transmission Date: 20060701
  Serious: Yes (Hospitalization)
  Sender: FDA-Public Use
  Company Number: US-KINGPHARMUSA00001-K200600345

PATIENT
  Age: 53 Year
  Sex: Female

DRUGS (3)
  1. ALTACE [Suspect]
     Dosage: 20 TABLETS (5MG), SINGLE
     Route: 048
  2. HYDROCHLOROTHIAZIDE [Suspect]
     Dosage: 20 TABLETS (25MG), SINGLE
     Route: 048
  3. METOPROLOL [Suspect]
     Dosage: 9.5 G (100  TABLETS),SINGLE
     Route: 048

REACTIONS (18)
  - BLOOD PRESSURE IMMEASURABLE [None]
  - BRAIN NATRIURETIC PEPTIDE INCREASED [None]
  - BUNDLE BRANCH BLOCK RIGHT [None]
  - C-REACTIVE PROTEIN INCREASED [None]
  - CARDIOGENIC SHOCK [None]
  - EJECTION FRACTION DECREASED [None]
  - INTENTIONAL OVERDOSE [None]
  - LOSS OF CONSCIOUSNESS [None]
  - LUNG INFILTRATION [None]
  - MULTIPLE DRUG OVERDOSE INTENTIONAL [None]
  - PNEUMONIA [None]
  - POISONING [None]
  - PROCALCITONIN [None]
  - PULSE ABSENT [None]
  - RENAL FAILURE ACUTE [None]
  - SINUS BRADYCARDIA [None]
  - SUICIDE ATTEMPT [None]
  - VENTRICULAR DYSFUNCTION [None]
